FAERS Safety Report 8122342-9 (Version None)
Quarter: 2012Q1

REPORT INFORMATION
  Report Type: 
  Country: None (occurrence: None)
  Receive Date: 20120207
  Receipt Date: 20120207
  Transmission Date: 20120608
  Serious: No
  Sender: FDA-Public Use
  Company Number: None

PATIENT
  Age: 92 Year
  Sex: Female
  Weight: 50.8 kg

DRUGS (1)
  1. AMPLIMEXON [Suspect]
     Dates: start: 20111024

REACTIONS (2)
  - URINARY TRACT INFECTION [None]
  - SEPSIS [None]
